FAERS Safety Report 23946516 (Version 2)
Quarter: 2024Q2

REPORT INFORMATION
  Report Type: Report from Study
  Country: US (occurrence: US)
  Receive Date: 20240606
  Receipt Date: 20240611
  Transmission Date: 20240716
  Serious: Yes (Death, Other)
  Sender: FDA-Public Use
  Company Number: US-SEATTLE GENETICS-2024SGN01311

PATIENT
  Age: 55 Year
  Sex: Female

DRUGS (3)
  1. TUKYSA [Suspect]
     Active Substance: TUCATINIB
     Indication: Malignant nipple neoplasm female
     Dosage: 300 MG, 2X/DAY
     Dates: start: 20231216
  2. TUKYSA [Suspect]
     Active Substance: TUCATINIB
     Dosage: UNK
  3. CAPECITABINE [Suspect]
     Active Substance: CAPECITABINE
     Indication: Malignant nipple neoplasm female
     Dosage: 1000 MG, 2X/DAY
     Dates: start: 202110

REACTIONS (5)
  - Death [Fatal]
  - Heart rate increased [Unknown]
  - Blood pressure increased [Unknown]
  - Brain fog [Unknown]
  - Chills [Unknown]
